FAERS Safety Report 6615746-4 (Version None)
Quarter: 2010Q1

REPORT INFORMATION
  Report Type: 
  Country: None (occurrence: None)
  Receive Date: 20100305
  Receipt Date: 20100301
  Transmission Date: 20100710
  Serious: Yes (Hospitalization)
  Sender: FDA-Public Use
  Company Number: US-RB-001736-10

PATIENT
  Sex: Female

DRUGS (2)
  1. SUBOXONE [Suspect]
     Route: 060
     Dates: start: 20090101, end: 20090101
  2. SUBOXONE [Suspect]
     Route: 060
     Dates: start: 20090101

REACTIONS (3)
  - COUGH [None]
  - NASOPHARYNGITIS [None]
  - UTERINE PROLAPSE [None]
